FAERS Safety Report 17256348 (Version 2)
Quarter: 2020Q1

REPORT INFORMATION
  Report Type: Spontaneous
  Country: AU (occurrence: AU)
  Receive Date: 20200110
  Receipt Date: 20200325
  Transmission Date: 20200409
  Serious: Yes (Other)
  Sender: FDA-Public Use
  Company Number: AU-SUN PHARMACEUTICAL INDUSTRIES LTD-2019R1-232595

PATIENT
  Weight: 12 kg

DRUGS (1)
  1. DEXMEDETOMIDINE. [Suspect]
     Active Substance: DEXMEDETOMIDINE
     Indication: GENERAL ANAESTHESIA
     Dosage: 0.2 MICROGRAM/KILOGRAM PER MIN
     Route: 042

REACTIONS (4)
  - Overdose [Unknown]
  - Hypertension [Unknown]
  - Bradycardia [Unknown]
  - Hypotension [Unknown]
